FAERS Safety Report 19759741 (Version 3)
Quarter: 2021Q3

REPORT INFORMATION
  Report Type: Spontaneous
  Country: JP (occurrence: JP)
  Receive Date: 20210830
  Receipt Date: 20210908
  Transmission Date: 20211014
  Serious: Yes (Death, Other)
  Sender: FDA-Public Use
  Company Number: NVSJ2021JP011376

PATIENT
  Age: 94 Year
  Sex: Male

DRUGS (4)
  1. ELIQUIS [Concomitant]
     Active Substance: APIXABAN
     Indication: ATRIAL FIBRILLATION
     Dosage: 2.5 MG
     Route: 048
     Dates: start: 20200727, end: 20210531
  2. BELSOMRA [Concomitant]
     Active Substance: SUVOREXANT
     Indication: INSOMNIA
     Dosage: 15 MG
     Route: 048
     Dates: start: 20200727, end: 20210531
  3. ENTRESTO [Suspect]
     Active Substance: SACUBITRIL\VALSARTAN
     Indication: CARDIAC FAILURE CHRONIC
     Dosage: 50 MG, BID
     Route: 048
     Dates: start: 20210518, end: 20210531
  4. ESAXERENONE. [Concomitant]
     Active Substance: ESAXERENONE
     Indication: HYPERTENSION
     Dosage: 2.5 MG
     Route: 048
     Dates: start: 20210518, end: 20210531

REACTIONS (5)
  - Fibrin D dimer increased [Unknown]
  - Hypophagia [Unknown]
  - Cardiac failure chronic [Fatal]
  - Disseminated intravascular coagulation [Unknown]
  - Renal impairment [Unknown]

NARRATIVE: CASE EVENT DATE: 20210531
